FAERS Safety Report 4319634-8 (Version None)
Quarter: 2004Q1

REPORT INFORMATION
  Report Type: 
  Country: None (occurrence: None)
  Receive Date: 20040319
  Receipt Date: 20040304
  Transmission Date: 20041129
  Serious: Yes (Hospitalization, Disabling, Other)
  Sender: FDA-Public Use
  Company Number: WAES 0403GBR00052

PATIENT
  Age: 50 Year
  Sex: Female

DRUGS (12)
  1. ACETAMINOPHEN AND DIHYDROCODEINE BITARTRATE [Concomitant]
  2. ATENOLOL [Concomitant]
  3. ATORVASTATIN CALCIUM [Concomitant]
     Indication: CORONARY ARTERY DISEASE
  4. CLOPIDOGREL BISULFATE [Concomitant]
  5. DICLOFENAC [Concomitant]
  6. DILTIAZEM HYDROCHLORIDE [Concomitant]
  7. ZETIA [Suspect]
     Indication: LIPIDS ABNORMAL
     Route: 048
     Dates: start: 20031010, end: 20040123
  8. FUROSEMIDE [Concomitant]
  9. IBUPROFEN [Concomitant]
  10. ISOSORBIDE MONONITRATE [Concomitant]
  11. LACTULOSE [Concomitant]
  12. LEVOTHYROXINE SODIUM [Concomitant]

REACTIONS (3)
  - ABDOMINAL PAIN UPPER [None]
  - HEPATITIS ACUTE [None]
  - VOMITING [None]
